FAERS Safety Report 11421320 (Version 3)
Quarter: 2015Q4

REPORT INFORMATION
  Report Type: Report from Study
  Country: JP (occurrence: JP)
  Receive Date: 20150826
  Receipt Date: 20151009
  Transmission Date: 20160304
  Serious: Yes (Hospitalization, Other)
  Sender: FDA-Public Use
  Company Number: JP-B.I. PHARMACEUTICALS,INC./RIDGEFIELD-2015-BI-46013NB

PATIENT
  Age: 77 Year
  Sex: Female
  Weight: 50.2 kg

DRUGS (8)
  1. PRAZAXA [Suspect]
     Active Substance: DABIGATRAN ETEXILATE MESYLATE
     Indication: THROMBOSIS PROPHYLAXIS
  2. BEPRICOR [Suspect]
     Active Substance: BEPRIDIL
     Indication: ATRIAL FIBRILLATION
     Dosage: 100 MG
     Route: 048
  3. HERBESSER [Suspect]
     Active Substance: DILTIAZEM HYDROCHLORIDE
     Indication: PRODUCT USED FOR UNKNOWN INDICATION
     Dosage: 200 MG
     Route: 048
  4. PRAZAXA [Suspect]
     Active Substance: DABIGATRAN ETEXILATE MESYLATE
     Indication: ATRIAL FIBRILLATION
     Dosage: 220 MG
     Route: 048
     Dates: start: 20120416, end: 20130512
  5. LASIX [Suspect]
     Active Substance: FUROSEMIDE
     Indication: CARDIAC FAILURE
     Dosage: 20 MG
     Route: 048
     Dates: start: 20140106
  6. PRAZAXA [Suspect]
     Active Substance: DABIGATRAN ETEXILATE MESYLATE
     Indication: CEREBROVASCULAR ACCIDENT PROPHYLAXIS
     Dosage: 220 MG
     Route: 048
     Dates: start: 20150528
  7. ALDACTONE A [Suspect]
     Active Substance: SPIRONOLACTONE
     Indication: CARDIAC FAILURE
     Dosage: 25 MG
     Route: 048
     Dates: start: 20140106
  8. LOXONIN [Suspect]
     Active Substance: LOXOPROFEN SODIUM
     Indication: HEADACHE
     Route: 048
     Dates: start: 20120502, end: 20120507

REACTIONS (6)
  - Renal impairment [Recovered/Resolved]
  - Cardiac failure [Recovered/Resolved]
  - Hepatic function abnormal [Recovered/Resolved]
  - Cholangitis [Recovered/Resolved]
  - Atrial fibrillation [Recovered/Resolved]
  - Headache [Recovered/Resolved]

NARRATIVE: CASE EVENT DATE: 20120502
